FAERS Safety Report 6796213-4 (Version None)
Quarter: 2010Q2

REPORT INFORMATION
  Report Type: 
  Country: None (occurrence: None)
  Receive Date: 20100624
  Receipt Date: 20100624
  Transmission Date: 20101027
  Serious: Yes (Other)
  Sender: FDA-Public Use
  Company Number: None

PATIENT
  Age: 34 Year
  Sex: Male
  Weight: 95 kg

DRUGS (4)
  1. AMBISOME [Suspect]
     Indication: LEISHMANIASIS
     Dosage: 269 MG IV ONCE DIALY
  2. ACETAMINOPHEN [Concomitant]
  3. DIPHENHYDROMINE [Concomitant]
  4. NORMAL SALINE [Concomitant]

REACTIONS (3)
  - FLUSHING [None]
  - INFUSION RELATED REACTION [None]
  - MUSCLE SPASMS [None]
